FAERS Safety Report 8839757 (Version 1)
Quarter: 2012Q4

REPORT INFORMATION
  Report Type: Spontaneous
  Country: GB (occurrence: None)
  Receive Date: 20121011
  Receipt Date: 20121011
  Transmission Date: 20130627
  Serious: No
  Sender: FDA-Public Use
  Company Number: GB-2012-3406

PATIENT
  Sex: Female

DRUGS (2)
  1. NAVELBINE [Suspect]
     Indication: LUNG CANCER
     Route: 042
  2. CARBOPLATIN [Suspect]

REACTIONS (1)
  - Phlebitis [None]
